FAERS Safety Report 25894292 (Version 2)
Quarter: 2025Q4

REPORT INFORMATION
  Report Type: Report from Study
  Country: JP (occurrence: JP)
  Receive Date: 20251008
  Receipt Date: 20251023
  Transmission Date: 20260118
  Serious: Yes (Death)
  Sender: REGENERON
  Company Number: JP-REGENERON PHARMACEUTICALS, INC.-2025-158378

PATIENT
  Age: 53 Year
  Sex: Female

DRUGS (2)
  1. CEMIPLIMAB [Suspect]
     Active Substance: CEMIPLIMAB
     Indication: Cervix carcinoma recurrent
     Dosage: 350 MG, Q3W
     Route: 041
     Dates: start: 20250814, end: 20250904
  2. DECADRON [Suspect]
     Active Substance: DEXAMETHASONE
     Indication: Immunosuppression

REACTIONS (2)
  - Disease progression [Fatal]
  - Infection [Fatal]

NARRATIVE: CASE EVENT DATE: 20250924
